FAERS Safety Report 19024320 (Version 4)
Quarter: 2022Q1

REPORT INFORMATION
  Report Type: Report from Study
  Country: DE (occurrence: DE)
  Receive Date: 20210318
  Receipt Date: 20220113
  Transmission Date: 20220423
  Serious: Yes (Hospitalization, Other)
  Sender: FDA-Public Use
  Company Number: NVSC2021DE058583

PATIENT
  Age: 51 Year
  Sex: Female
  Weight: 75 kg

DRUGS (13)
  1. COSENTYX [Suspect]
     Active Substance: SECUKINUMAB
     Indication: Psoriasis
     Dosage: 300 MG
     Route: 058
     Dates: start: 20160503
  2. COSENTYX [Suspect]
     Active Substance: SECUKINUMAB
     Dosage: 300 MG, QW
     Route: 065
     Dates: start: 20160608, end: 20210505
  3. COSENTYX [Suspect]
     Active Substance: SECUKINUMAB
     Dosage: UNK
     Route: 065
     Dates: start: 20201021
  4. AMITRIPTYLINE HYDROCHLORIDE [Concomitant]
     Active Substance: AMITRIPTYLINE HYDROCHLORIDE
     Indication: Product used for unknown indication
     Dosage: 1 DF, QD
     Route: 048
  5. FORMOTEROL FUMARATE [Concomitant]
     Active Substance: FORMOTEROL FUMARATE
     Indication: Product used for unknown indication
     Dosage: UNK 2-0-2-0
     Route: 055
     Dates: start: 20201109, end: 2020
  6. BUDESONIDE [Concomitant]
     Active Substance: BUDESONIDE
     Indication: Product used for unknown indication
     Dosage: UNK 4-0-4-0
     Route: 055
     Dates: start: 20201109, end: 2020
  7. PANTOPRAZOLE [Concomitant]
     Active Substance: PANTOPRAZOLE
     Indication: Product used for unknown indication
     Dosage: 1 DF, QD BEFORE MEALS
     Route: 048
  8. METAMIZOLE [Concomitant]
     Active Substance: METAMIZOLE
     Indication: Product used for unknown indication
     Dosage: UNK, PRN
     Route: 048
     Dates: start: 20201109
  9. SULTANOL [Concomitant]
     Active Substance: ALBUTEROL SULFATE
     Indication: Product used for unknown indication
     Dosage: UNK, PRN
     Route: 055
  10. HEPARIN [Concomitant]
     Active Substance: HEPARIN SODIUM
     Indication: Product used for unknown indication
     Dosage: 5000 IU, UNKNOWN
     Route: 042
  11. PROPOFOL [Concomitant]
     Active Substance: PROPOFOL
     Indication: Sedative therapy
     Dosage: UNK
     Route: 042
  12. KETANEST [Concomitant]
     Indication: Sedative therapy
     Dosage: UNK
     Route: 042
  13. PIRITRAMIDE [Concomitant]
     Active Substance: PIRITRAMIDE
     Indication: Sedative therapy
     Route: 065

REACTIONS (20)
  - Atrial fibrillation [Recovered/Resolved]
  - Angina pectoris [Unknown]
  - Mitral valve incompetence [Recovered/Resolved]
  - Asthma [Unknown]
  - Food allergy [Unknown]
  - Depression [Unknown]
  - Coeliac artery compression syndrome [Unknown]
  - Cholelithiasis [Unknown]
  - Lichen sclerosus [Unknown]
  - Dust allergy [Unknown]
  - Allergy to animal [Unknown]
  - Seasonal allergy [Unknown]
  - Dizziness [Unknown]
  - Asthenia [Unknown]
  - Palpitations [Unknown]
  - Tachycardia [Unknown]
  - Irritable bowel syndrome [Unknown]
  - Mitral valve prolapse [Unknown]
  - N-terminal prohormone brain natriuretic peptide increased [Unknown]
  - Diarrhoea [Unknown]

NARRATIVE: CASE EVENT DATE: 20201006
